FAERS Safety Report 5943062-2 (Version None)
Quarter: 2008Q4

REPORT INFORMATION
  Report Type: 
  Country: None (occurrence: None)
  Receive Date: 20081106
  Receipt Date: 20081029
  Transmission Date: 20090506
  Serious: Yes (Other)
  Sender: FDA-Public Use
  Company Number: US-ABBOTT-08P-163-0484610-00

PATIENT
  Age: 70 Year
  Sex: Female

DRUGS (2)
  1. SYNTHROID [Suspect]
     Indication: HYPOTHYROIDISM
     Route: 048
     Dates: start: 19800101
  2. PYRIDOSTIGMINE BROMIDE [Concomitant]
     Indication: MYASTHENIA GRAVIS
     Route: 048
     Dates: start: 19800101

REACTIONS (10)
  - CHEST DISCOMFORT [None]
  - CHEST PAIN [None]
  - DYSPNOEA [None]
  - FATIGUE [None]
  - LETHARGY [None]
  - MYASTHENIA GRAVIS [None]
  - NIGHT SWEATS [None]
  - ONYCHOCLASIS [None]
  - VISION BLURRED [None]
  - WALDENSTROM'S MACROGLOBULINAEMIA [None]
